FAERS Safety Report 9805024 (Version 2)
Quarter: 2014Q1

REPORT INFORMATION
  Report Type: Spontaneous
  Country: NL (occurrence: NL)
  Receive Date: 20140109
  Receipt Date: 20140129
  Transmission Date: 20141002
  Serious: Yes (Other)
  Sender: FDA-Public Use
  Company Number: NL-AMGEN-NLDSP2014001192

PATIENT
  Age: 61 Year
  Sex: Male
  Weight: 70 kg

DRUGS (6)
  1. ENBREL [Suspect]
     Indication: RHEUMATOID ARTHRITIS
     Dosage: 50 MG, WEEKLY
     Route: 058
     Dates: start: 20090915, end: 20131127
  2. METHOTREXATE [Concomitant]
     Indication: RHEUMATOID ARTHRITIS
     Dosage: 10 MG, WEEKLY
     Route: 048
     Dates: start: 200404, end: 20131127
  3. METHOTREXATE [Concomitant]
     Dosage: UNK
  4. NAPROXEN [Concomitant]
     Indication: PAIN
     Dosage: 2 X 500, UNK
     Route: 048
     Dates: end: 20131127
  5. NAPROXEN [Concomitant]
     Dosage: UNK
  6. PANTOPRAZOL [Concomitant]
     Indication: PROPHYLAXIS
     Dosage: 2 X 20
     Route: 048
     Dates: start: 20100706

REACTIONS (2)
  - Lymphocyte percentage abnormal [Recovered/Resolved]
  - Neutropenia [Recovered/Resolved]
